FAERS Safety Report 25440021 (Version 1)
Quarter: 2025Q2

REPORT INFORMATION
  Report Type: Spontaneous
  Country: CA (occurrence: CA)
  Receive Date: 20250616
  Receipt Date: 20250616
  Transmission Date: 20250717
  Serious: Yes (Other)
  Sender: SANOFI AVENTIS
  Company Number: CA-DialogSolutions-SAAVPROD-PI785706-C1

PATIENT
  Age: 48 Year
  Sex: Male

DRUGS (11)
  1. ANTI-THYMOCYTE GLOBULIN (RABBIT) NOS [Suspect]
     Active Substance: LAPINE T-LYMPHOCYTE IMMUNE GLOBULIN
     Indication: End stage renal disease
  2. ANTI-THYMOCYTE GLOBULIN (RABBIT) NOS [Suspect]
     Active Substance: LAPINE T-LYMPHOCYTE IMMUNE GLOBULIN
     Indication: Congenital cystic kidney disease
  3. PREDNISONE [Suspect]
     Active Substance: PREDNISONE
     Indication: End stage renal disease
  4. PREDNISONE [Suspect]
     Active Substance: PREDNISONE
     Indication: Congenital cystic kidney disease
     Dosage: 5 MG, QD
  5. PREDNISONE [Suspect]
     Active Substance: PREDNISONE
     Dosage: 10 MG, QD
  6. MYCOPHENOLIC ACID [Suspect]
     Active Substance: MYCOPHENOLIC ACID
     Indication: End stage renal disease
  7. MYCOPHENOLIC ACID [Suspect]
     Active Substance: MYCOPHENOLIC ACID
     Indication: Congenital cystic kidney disease
     Dosage: 500 MG, BID
  8. TACROLIMUS [Suspect]
     Active Substance: TACROLIMUS
     Indication: End stage renal disease
  9. TACROLIMUS [Suspect]
     Active Substance: TACROLIMUS
     Indication: Congenital cystic kidney disease
  10. TACROLIMUS [Suspect]
     Active Substance: TACROLIMUS
  11. TACROLIMUS [Suspect]
     Active Substance: TACROLIMUS

REACTIONS (5)
  - Squamous cell carcinoma of skin [Recovered/Resolved]
  - Oropharyngeal squamous cell carcinoma [Recovered/Resolved]
  - Lymphadenopathy [Recovered/Resolved]
  - Cytomegalovirus viraemia [Unknown]
  - Polyomavirus viraemia [Unknown]
